FAERS Safety Report 21371291 (Version 1)
Quarter: 2022Q3

REPORT INFORMATION
  Report Type: Spontaneous
  Country: AU (occurrence: AU)
  Receive Date: 20220923
  Receipt Date: 20220923
  Transmission Date: 20221027
  Serious: Yes (Other)
  Sender: FDA-Public Use
  Company Number: AU-JNJFOC-20220930600

PATIENT
  Age: 25 Year
  Sex: Female

DRUGS (4)
  1. MACITENTAN [Suspect]
     Active Substance: MACITENTAN
     Indication: Heart disease congenital
     Route: 048
     Dates: start: 201701
  2. MACITENTAN [Suspect]
     Active Substance: MACITENTAN
     Indication: Pulmonary arterial hypertension
  3. BOSENTAN [Concomitant]
     Active Substance: BOSENTAN
     Dates: start: 200905
  4. SILDENAFIL [Concomitant]
     Active Substance: SILDENAFIL
     Dosage: 3 TIMES A DAY
     Dates: start: 201503

REACTIONS (2)
  - Pericardial effusion [Unknown]
  - Dyspnoea exertional [Unknown]
